FAERS Safety Report 11154636 (Version 2)
Quarter: 2016Q1

REPORT INFORMATION
  Report Type: Spontaneous
  Country: FR (occurrence: FR)
  Receive Date: 20150602
  Receipt Date: 20160218
  Transmission Date: 20160525
  Serious: Yes (Life-Threatening, Hospitalization, Other)
  Sender: FDA-Public Use
  Company Number: FR-AMGEN-FRASP2015051933

PATIENT
  Age: 56 Year
  Sex: Female

DRUGS (5)
  1. PROCORALAN [Suspect]
     Active Substance: IVABRADINE
     Indication: EXTRASYSTOLES
     Dosage: 5 MG, BID
     Route: 048
     Dates: start: 20150416, end: 20150418
  2. SEROPLEX [Suspect]
     Active Substance: ESCITALOPRAM OXALATE
     Indication: DEPRESSION
     Dosage: 5 MG, QD
     Route: 048
     Dates: end: 20150418
  3. ATACAND [Concomitant]
     Active Substance: CANDESARTAN CILEXETIL
     Dosage: 4 MG, DAILY
     Dates: start: 20150416
  4. ALDACTONE [Concomitant]
     Active Substance: SPIRONOLACTONE
     Dosage: 25 MG, UNKEVERY OTHER DAY
  5. PLAQUENIL [Suspect]
     Active Substance: HYDROXYCHLOROQUINE SULFATE
     Indication: UNDIFFERENTIATED CONNECTIVE TISSUE DISEASE
     Dosage: 200 MG, BID
     Route: 048
     Dates: start: 201108, end: 20150418

REACTIONS (11)
  - Bundle branch block left [Unknown]
  - Hypokalaemia [Unknown]
  - Nausea [Unknown]
  - Ventricular dyssynchrony [Unknown]
  - Lactic acidosis [Unknown]
  - Torsade de pointes [Recovered/Resolved with Sequelae]
  - Chest pain [Unknown]
  - Cardio-respiratory arrest [Recovered/Resolved]
  - Electrocardiogram QT prolonged [Recovered/Resolved]
  - Malaise [Unknown]
  - Diarrhoea [Unknown]

NARRATIVE: CASE EVENT DATE: 20150418
